FAERS Safety Report 8718022 (Version 3)
Quarter: 2014Q1

REPORT INFORMATION
  Report Type: Report from Study
  Country: US (occurrence: US)
  Receive Date: 20120810
  Receipt Date: 20140109
  Transmission Date: 20141002
  Serious: Yes (Death, Hospitalization, Other)
  Sender: FDA-Public Use
  Company Number: US-BRISTOL-MYERS SQUIBB COMPANY-16828592

PATIENT
  Age: 58 Year
  Sex: Female
  Weight: 79 kg

DRUGS (9)
  1. IXABEPILONE [Suspect]
     Indication: ENDOMETRIAL CANCER
     Dosage: LAST ADMINISTERED 12MAY2011
     Route: 042
     Dates: start: 20110512
  2. CARBOPLATIN [Suspect]
     Indication: ENDOMETRIAL CANCER
     Dosage: LAST ADMINISTERED 12MAY2011
     Route: 042
     Dates: start: 20110512
  3. BEVACIZUMAB [Suspect]
     Indication: ENDOMETRIAL CANCER
     Dosage: LAST ADMINISTERED 12MAY2011
     Route: 042
     Dates: start: 20110512
  4. NORCO [Concomitant]
  5. COMPAZINE [Concomitant]
  6. LOVENOX [Concomitant]
  7. PROTONIX [Concomitant]
  8. SYNTHROID [Concomitant]
  9. VENTOLIN [Concomitant]

REACTIONS (12)
  - Cardiac arrest [Fatal]
  - Sepsis [Unknown]
  - Aspiration [Recovered/Resolved]
  - Abdominal distension [Unknown]
  - Nausea [Unknown]
  - Ileus [Unknown]
  - Vomiting [Unknown]
  - Febrile neutropenia [Unknown]
  - Supraventricular tachycardia [Recovered/Resolved]
  - Hyperkalaemia [Unknown]
  - Hypovolaemia [Unknown]
  - Large intestinal obstruction [Unknown]
